FAERS Safety Report 14146525 (Version 3)
Quarter: 2017Q4

REPORT INFORMATION
  Report Type: Spontaneous
  Country: US (occurrence: US)
  Receive Date: 20171031
  Receipt Date: 20171221
  Transmission Date: 20180321
  Serious: Yes (Hospitalization, Other)
  Sender: FDA-Public Use
  Company Number: US-JNJFOC-20171010027

PATIENT
  Age: 73 Year
  Sex: Male
  Weight: 81.65 kg

DRUGS (5)
  1. ZYTIGA [Suspect]
     Active Substance: ABIRATERONE ACETATE
     Indication: PRODUCT USED FOR UNKNOWN INDICATION
     Dosage: STRENGTH: 250 MG
     Route: 048
     Dates: start: 201702, end: 20170303
  2. ZYTIGA [Suspect]
     Active Substance: ABIRATERONE ACETATE
     Indication: PRODUCT USED FOR UNKNOWN INDICATION
     Dosage: STRENGTH: 250 MG
     Route: 048
     Dates: start: 201705, end: 2017
  3. PREDNISONE. [Concomitant]
     Active Substance: PREDNISONE
     Dosage: 2 TABLETS
     Route: 065
     Dates: end: 201701
  4. ZYTIGA [Suspect]
     Active Substance: ABIRATERONE ACETATE
     Indication: PRODUCT USED FOR UNKNOWN INDICATION
     Dosage: STRENGTH: 250 MG
     Route: 048
     Dates: start: 201512, end: 201701
  5. PREDNISONE. [Concomitant]
     Active Substance: PREDNISONE
     Route: 065
     Dates: start: 201705

REACTIONS (7)
  - Weight decreased [Recovering/Resolving]
  - Oral infection [Unknown]
  - Abdominal pain [Unknown]
  - Cerebrovascular accident [Unknown]
  - Hypertension [Unknown]
  - Withdrawal syndrome [Unknown]
  - Product lot number issue [Unknown]

NARRATIVE: CASE EVENT DATE: 201701
